FAERS Safety Report 17405430 (Version 1)
Quarter: 2020Q1

REPORT INFORMATION
  Report Type: Spontaneous
  Country: SE (occurrence: SE)
  Receive Date: 20200212
  Receipt Date: 20200212
  Transmission Date: 20200409
  Serious: Yes (Other)
  Sender: FDA-Public Use
  Company Number: SE-TEVA-2020-SE-1184402

PATIENT
  Age: 80 Year
  Sex: Male

DRUGS (1)
  1. MEMANTINE RATIOPHARM 20 MG FILMDRAGERAD TABLETT [Suspect]
     Active Substance: MEMANTINE
     Dosage: 20 MG
     Dates: start: 20181112, end: 201912

REACTIONS (1)
  - Psychotic disorder [Recovered/Resolved]

NARRATIVE: CASE EVENT DATE: 201909
